FAERS Safety Report 6356841-7 (Version None)
Quarter: 2009Q3

REPORT INFORMATION
  Report Type: 
  Country: None (occurrence: None)
  Receive Date: 20090910
  Receipt Date: 20090910
  Transmission Date: 20100115
  Serious: Yes (Life-Threatening, Hospitalization)
  Sender: FDA-Public Use
  Company Number: None

PATIENT
  Age: 38 Year
  Sex: Female
  Weight: 56.6996 kg

DRUGS (1)
  1. TERBINAFINE 250MG APOTEX CORP [Suspect]
     Indication: ONYCHOMYCOSIS
     Dosage: 250MG DAILY PO
     Route: 048
     Dates: start: 20090202, end: 20090302

REACTIONS (7)
  - CELLULITIS [None]
  - COLLAGEN-VASCULAR DISEASE [None]
  - FEELING COLD [None]
  - HEPATIC ENZYME INCREASED [None]
  - LUPUS-LIKE SYNDROME [None]
  - SKIN EXFOLIATION [None]
  - WHITE BLOOD CELL COUNT INCREASED [None]
